FAERS Safety Report 12484261 (Version 1)
Quarter: 2016Q2

REPORT INFORMATION
  Report Type: Spontaneous
  Country: US (occurrence: None)
  Receive Date: 20160620
  Receipt Date: 20160620
  Transmission Date: 20160815
  Serious: Yes (Hospitalization)
  Sender: FDA-Public Use
  Company Number: None

PATIENT
  Age: 61 Year
  Sex: Male
  Weight: 147.3 kg

DRUGS (1)
  1. DAPSONE. [Suspect]
     Active Substance: DAPSONE
     Indication: METHAEMOGLOBINAEMIA
     Route: 048
     Dates: start: 20150915, end: 20160209

REACTIONS (3)
  - Hypoxia [None]
  - Papillitis [None]
  - Methaemoglobinaemia [None]

NARRATIVE: CASE EVENT DATE: 20160301
